FAERS Safety Report 4621191-3 (Version None)
Quarter: 2005Q1

REPORT INFORMATION
  Report Type: 
  Country: None (occurrence: None)
  Receive Date: 20050328
  Receipt Date: 20050317
  Transmission Date: 20050727
  Serious: Yes (Hospitalization)
  Sender: FDA-Public Use
  Company Number: 2005-02-1326

PATIENT
  Age: 64 Year
  Sex: Female

DRUGS (6)
  1. NAQUA [Suspect]
     Indication: HYPERTENSION
     Dosage: 0.5 MG QD ORAL
     Route: 048
     Dates: start: 20040111, end: 20050209
  2. LIPITOR [Suspect]
     Indication: HYPERLIPIDAEMIA
     Dosage: 10 MGQD ORAL
     Route: 048
     Dates: end: 20050209
  3. PROBUCOL TABLETS [Concomitant]
  4. CETAPRIL [Concomitant]
  5. ADALAT L (NIFEDIPINE EXTENDED-RELEASE) [Concomitant]
  6. BEXTAXOLOL HYDROCHLORIDE [Concomitant]

REACTIONS (4)
  - ALANINE AMINOTRANSFERASE INCREASED [None]
  - ASPARTATE AMINOTRANSFERASE INCREASED [None]
  - FALSE POSITIVE LABORATORY RESULT [None]
  - LIVER DISORDER [None]
